FAERS Safety Report 9374911 (Version 1)
Quarter: 2013Q2

REPORT INFORMATION
  Report Type: Spontaneous
  Country: AT (occurrence: AT)
  Receive Date: 20130628
  Receipt Date: 20130628
  Transmission Date: 20140414
  Serious: Yes (Other)
  Sender: FDA-Public Use
  Company Number: AT-PFIZER INC-2013190755

PATIENT
  Age: 51 Year
  Sex: Female

DRUGS (9)
  1. AMLODIPINE BESILATE [Suspect]
     Dosage: 5 MG, UNK
     Route: 048
     Dates: start: 20090908
  2. SEROQUEL [Suspect]
     Dosage: 25 MG, TWICE DAILY
     Route: 048
     Dates: start: 20090925
  3. IXEL [Suspect]
     Dosage: 50 MG, UNK
     Route: 048
     Dates: start: 20090917, end: 20090917
  4. IXEL [Suspect]
     Dosage: 100 MG, UNK
     Route: 048
     Dates: start: 20090918, end: 20090920
  5. IXEL [Suspect]
     Dosage: 150 MG, UNK
     Route: 048
     Dates: start: 20090921, end: 20090923
  6. IXEL [Suspect]
     Dosage: 200 MG, UNK
     Route: 048
     Dates: start: 20090924
  7. TRITTICO [Suspect]
     Dosage: 75 MG, UNK
     Route: 048
     Dates: start: 20090828, end: 20090911
  8. TRITTICO [Suspect]
     Dosage: 150 MG, UNK
     Route: 048
     Dates: start: 20090912
  9. ATACAND [Suspect]
     Dosage: 16 MG, UNK
     Route: 048

REACTIONS (2)
  - Orthostatic intolerance [Recovered/Resolved]
  - Loss of consciousness [Recovered/Resolved]
